FAERS Safety Report 24914480 (Version 1)
Quarter: 2025Q1

REPORT INFORMATION
  Report Type: Spontaneous
  Country: IT (occurrence: IT)
  Receive Date: 20250203
  Receipt Date: 20250203
  Transmission Date: 20250409
  Serious: Yes (Hospitalization)
  Sender: CHEPLAPHARM
  Company Number: None

PATIENT
  Age: 95 Year
  Sex: Male

DRUGS (8)
  1. CLONAZEPAM [Interacting]
     Active Substance: CLONAZEPAM
     Indication: Anxiety
     Route: 048
     Dates: start: 2021, end: 20250119
  2. CLONAZEPAM [Interacting]
     Active Substance: CLONAZEPAM
     Indication: Anxiety
     Route: 048
     Dates: start: 20250120
  3. TAVOR (LORAZEPAM) [Interacting]
     Active Substance: LORAZEPAM
     Indication: Anxiety
     Route: 048
     Dates: start: 2021
  4. TAVOR (LORAZEPAM) [Interacting]
     Active Substance: LORAZEPAM
     Indication: Anxiety
     Route: 048
     Dates: start: 20250120
  5. LACIDIPINE [Concomitant]
     Active Substance: LACIDIPINE
     Indication: Hypertension
     Route: 048
  6. BISOPROLOL FUMARATE [Concomitant]
     Active Substance: BISOPROLOL FUMARATE
     Indication: Hypertension
     Route: 048
  7. BETAHISTINE HYDROCHLORIDE [Concomitant]
     Active Substance: BETAHISTINE HYDROCHLORIDE
     Indication: Vertigo
     Route: 048
  8. CANDESARTAN [Concomitant]
     Active Substance: CANDESARTAN
     Indication: Hypertension
     Route: 048

REACTIONS (5)
  - Craniocerebral injury [Recovering/Resolving]
  - Fall [Recovered/Resolved]
  - Drug interaction [Recovered/Resolved]
  - Skin laceration [Unknown]
  - Pyrexia [Unknown]

NARRATIVE: CASE EVENT DATE: 20250110
